FAERS Safety Report 10268872 (Version 1)
Quarter: 2014Q2

REPORT INFORMATION
  Report Type: Report from Study
  Country: JP (occurrence: JP)
  Receive Date: 20140630
  Receipt Date: 20140630
  Transmission Date: 20141212
  Serious: Yes (Death, Life-Threatening)
  Sender: FDA-Public Use
  Company Number: JP-GLAXOSMITHKLINE-B1008665A

PATIENT
  Age: 69 Year
  Sex: Female
  Weight: 45 kg

DRUGS (16)
  1. REVOLADE [Suspect]
     Indication: IMMUNE THROMBOCYTOPENIC PURPURA
     Route: 048
     Dates: start: 20130328, end: 20130410
  2. REVOLADE [Suspect]
     Indication: IMMUNE THROMBOCYTOPENIC PURPURA
     Route: 048
     Dates: start: 20130411, end: 20130703
  3. REVOLADE [Suspect]
     Indication: IMMUNE THROMBOCYTOPENIC PURPURA
     Route: 048
     Dates: start: 20130801, end: 20131106
  4. REVOLADE [Suspect]
     Indication: IMMUNE THROMBOCYTOPENIC PURPURA
     Route: 048
     Dates: start: 20131107, end: 20131204
  5. REVOLADE [Suspect]
     Indication: IMMUNE THROMBOCYTOPENIC PURPURA
     Route: 048
     Dates: start: 20131128, end: 20140105
  6. REVOLADE [Suspect]
     Indication: IMMUNE THROMBOCYTOPENIC PURPURA
     Route: 048
     Dates: start: 20140106, end: 20140122
  7. REVOLADE [Suspect]
     Indication: IMMUNE THROMBOCYTOPENIC PURPURA
     Route: 048
     Dates: start: 20140123, end: 20140206
  8. PREDONINE [Suspect]
     Indication: IMMUNE THROMBOCYTOPENIC PURPURA
     Route: 048
     Dates: end: 20140130
  9. METHYCOBAL [Concomitant]
     Route: 048
     Dates: end: 20140130
  10. GASTER [Concomitant]
     Route: 048
     Dates: end: 20140130
  11. SELBEX [Concomitant]
     Route: 048
     Dates: end: 20140130
  12. ADONA (AC-17) [Concomitant]
     Indication: PROPHYLAXIS
     Route: 048
     Dates: end: 20140130
  13. LENDORMIN [Concomitant]
     Route: 048
  14. AMARYL [Concomitant]
     Route: 048
     Dates: end: 20140130
  15. METGLUCO [Concomitant]
     Route: 048
     Dates: end: 20140130
  16. JANUVIA [Concomitant]
     Route: 048
     Dates: end: 20140130

REACTIONS (4)
  - Gastrointestinal haemorrhage [Fatal]
  - Sepsis [Fatal]
  - Cardiac failure [Recovering/Resolving]
  - Myocardial ischaemia [Recovering/Resolving]
